FAERS Safety Report 7274947-5 (Version None)
Quarter: 2011Q1

REPORT INFORMATION
  Report Type: 
  Country: None (occurrence: None)
  Receive Date: 20110202
  Receipt Date: 20110202
  Transmission Date: 20110831
  Serious: Yes (Hospitalization)
  Sender: FDA-Public Use
  Company Number: None

PATIENT
  Sex: Female
  Weight: 103.6 kg

DRUGS (28)
  1. SPIRIVA [Concomitant]
  2. REQUIP [Concomitant]
  3. METHOTREXATE [Concomitant]
  4. PREDNISONE TAB [Concomitant]
  5. ADVAIR HFA [Concomitant]
  6. OXYCODONE [Concomitant]
  7. FOSAMAX [Concomitant]
  8. MAXALT [Concomitant]
  9. DITROPAN [Concomitant]
  10. FLEXERIL [Concomitant]
  11. IPRATROPIUM (ATORVENT NASAL) [Concomitant]
  12. KEPPRA [Concomitant]
  13. SYNTHROID [Concomitant]
  14. CLONOZAPAM (KONOPIN) [Concomitant]
  15. PROZAC [Concomitant]
  16. HUMIRA [Concomitant]
  17. COLACE [Concomitant]
  18. ACTEMRA [Suspect]
     Indication: RHEUMATOID ARTHRITIS
     Dosage: 400 MG ONCE CONTINUOUS IV INFUSION
     Route: 042
     Dates: start: 20101210
  19. ZOFRAN [Concomitant]
  20. MIROLAX [Concomitant]
  21. ZYRTEC [Concomitant]
  22. HYDROXYCHLOROQINE (PLAQUENIL) [Concomitant]
  23. OMEPRAZOLE (PRILOSEC) [Concomitant]
  24. PROCHLORPERAZINE (COMPAZINE) [Concomitant]
  25. POTASSIUM CHLORIDE (KLOR-CON) [Concomitant]
  26. SENNA [Concomitant]
  27. HYTRIN [Concomitant]
  28. FLONASE [Concomitant]

REACTIONS (3)
  - CHEST DISCOMFORT [None]
  - CHEST PAIN [None]
  - DYSPNOEA [None]
